FAERS Safety Report 9894100 (Version 3)
Quarter: 2014Q2

REPORT INFORMATION
  Report Type: Spontaneous
  Country: JP (occurrence: JP)
  Receive Date: 20140213
  Receipt Date: 20140424
  Transmission Date: 20141212
  Serious: Yes (Other)
  Sender: FDA-Public Use
  Company Number: JP-PFIZER INC-2014037631

PATIENT
  Age: 42 Year
  Sex: Female

DRUGS (6)
  1. LIPITOR [Suspect]
     Dosage: 10 MG, 1X/DAY (IN THE EVENING)
     Route: 048
  2. DESYREL [Suspect]
     Dosage: 100 MG, DAILY
     Route: 048
  3. LUNESTA [Suspect]
     Dosage: UNK
     Route: 048
  4. FLUNITRAZEPAM [Suspect]
     Dosage: UNK
  5. ABILIFY [Suspect]
     Dosage: UNK
     Route: 048
  6. UBRETID [Suspect]
     Dosage: UNK

REACTIONS (3)
  - Renal impairment [Unknown]
  - Blood urea increased [Unknown]
  - White blood cell count increased [Unknown]
